FAERS Safety Report 8760961 (Version 1)
Quarter: 2012Q4

REPORT INFORMATION
  Report Type: 
  Country: US (occurrence: US)
  Receive Date: 20120830
  Receipt Date: 20120830
  Transmission Date: 20130627
  Serious: Yes (Hospitalization, Other)
  Sender: FDA-Public Use
  Company Number: US-SANOFI-AVENTIS-2012SA060413

PATIENT
  Sex: Female

DRUGS (1)
  1. FERRLECIT [Suspect]
     Route: 065
     Dates: start: 20120817, end: 20120820

REACTIONS (5)
  - Coma [Not Recovered/Not Resolved]
  - Oedema peripheral [Not Recovered/Not Resolved]
  - Vomiting [Not Recovered/Not Resolved]
  - Syncope [Unknown]
  - Pruritus [Unknown]
